FAERS Safety Report 8500327-8 (Version None)
Quarter: 2012Q3

REPORT INFORMATION
  Report Type: 
  Country: None (occurrence: None)
  Receive Date: 20120710
  Receipt Date: 20120118
  Transmission Date: 20120928
  Serious: No
  Sender: FDA-Public Use
  Company Number: US-MYLANLABS-2012S1001528

PATIENT
  Sex: Female

DRUGS (1)
  1. ONDANSETRON [Suspect]
     Indication: VOMITING IN PREGNANCY
     Route: 048
     Dates: start: 20120108, end: 20120117

REACTIONS (1)
  - EXTRASYSTOLES [None]
